FAERS Safety Report 19469696 (Version 1)
Quarter: 2021Q2

REPORT INFORMATION
  Report Type: Spontaneous
  Country: CA (occurrence: CA)
  Receive Date: 20210629
  Receipt Date: 20210629
  Transmission Date: 20210717
  Serious: Yes (Life-Threatening, Other)
  Sender: FDA-Public Use
  Company Number: CA-SA-2021SA207177

PATIENT
  Age: 10 Year
  Sex: Female
  Weight: 26 kg

DRUGS (40)
  1. EUCERIN [UREA] [Concomitant]
  2. MYCAMINE [Concomitant]
     Active Substance: MICAFUNGIN SODIUM
  3. ONDANSETRON [Concomitant]
     Active Substance: ONDANSETRON
  4. ANTI?THYMOCYTE GLOBULIN (RABBIT) NOS [Suspect]
     Active Substance: LAPINE T-LYMPHOCYTE IMMUNE GLOBULIN
     Indication: COMBINED IMMUNODEFICIENCY
     Dosage: 65 MG
     Route: 042
  5. CYCLOPHOSPHAMIDE. [Suspect]
     Active Substance: CYCLOPHOSPHAMIDE
     Indication: EPSTEIN-BARR VIRUS ASSOCIATED LYMPHOPROLIFERATIVE DISORDER
     Dosage: 750 MG
     Route: 042
  6. AMLODIPINE [Concomitant]
     Active Substance: AMLODIPINE BESYLATE
  7. FUROSEMIDE. [Concomitant]
     Active Substance: FUROSEMIDE
  8. KETOCONAZOLE. [Concomitant]
     Active Substance: KETOCONAZOLE
  9. RANITIDINE. [Concomitant]
     Active Substance: RANITIDINE
  10. URSODEOXYCHOLIC ACID [Concomitant]
     Active Substance: URSODIOL
  11. ZINC. [Concomitant]
     Active Substance: ZINC
  12. BUSULFAN. [Suspect]
     Active Substance: BUSULFAN
     Indication: COMBINED IMMUNODEFICIENCY
     Dosage: 130 MG
     Route: 042
  13. CALCIUM AND VITAMIN D [Concomitant]
     Active Substance: CALCIUM\VITAMIN D
  14. DIMENHYDRINATE. [Concomitant]
     Active Substance: DIMENHYDRINATE
  15. FAMOTIDINE. [Concomitant]
     Active Substance: FAMOTIDINE
  16. MAGNESIUM [Concomitant]
     Active Substance: MAGNESIUM
  17. DOXORUBICIN HYDROCHLORIDE. [Suspect]
     Active Substance: DOXORUBICIN HYDROCHLORIDE
     Indication: EPSTEIN-BARR VIRUS ASSOCIATED LYMPHOPROLIFERATIVE DISORDER
     Dosage: 50 MG
     Route: 042
  18. CEFTAZIDIME. [Concomitant]
     Active Substance: CEFTAZIDIME
  19. VINCRISTINE SULFATE. [Suspect]
     Active Substance: VINCRISTINE SULFATE
     Indication: EPSTEIN-BARR VIRUS ASSOCIATED LYMPHOPROLIFERATIVE DISORDER
     Dosage: 1.4 MG
     Route: 042
  20. PROBENECID. [Concomitant]
     Active Substance: PROBENECID
  21. VINCRISTINE SULFATE. [Suspect]
     Active Substance: VINCRISTINE SULFATE
     Dosage: 1.4 MG
     Route: 042
  22. ACETAMINOPHEN. [Concomitant]
     Active Substance: ACETAMINOPHEN
  23. ACYCLOVIR [ACICLOVIR] [Concomitant]
     Active Substance: ACYCLOVIR
  24. LEVETIRACETAM. [Concomitant]
     Active Substance: LEVETIRACETAM
  25. NITAZOXANIDE [Concomitant]
     Active Substance: NITAZOXANIDE
  26. POTASSIUM [Concomitant]
     Active Substance: POTASSIUM
  27. SULFAMETHOXAZOLE;TRIMETHOPRIM [Concomitant]
     Active Substance: SULFAMETHOXAZOLE\TRIMETHOPRIM
  28. VISTIDE [Concomitant]
     Active Substance: CIDOFOVIR
  29. FLUDARABINE PHOSPHATE. [Suspect]
     Active Substance: FLUDARABINE PHOSPHATE
     Indication: COMBINED IMMUNODEFICIENCY
     Dosage: 30 MG
     Route: 042
  30. CICLOSPORIN [Concomitant]
     Active Substance: CYCLOSPORINE
  31. DIPHENHYDRAMINE. [Concomitant]
     Active Substance: DIPHENHYDRAMINE
  32. HYDROCORTISONE. [Concomitant]
     Active Substance: HYDROCORTISONE
  33. METHYLPREDNISOLONE. [Concomitant]
     Active Substance: METHYLPREDNISOLONE
  34. MYCOPHENOLATE MOFETIL. [Concomitant]
     Active Substance: MYCOPHENOLATE MOFETIL
  35. CYCLOPHOSPHAMIDE. [Suspect]
     Active Substance: CYCLOPHOSPHAMIDE
     Dosage: 750 MG
     Route: 042
  36. ALLOPURINOL. [Concomitant]
     Active Substance: ALLOPURINOL
  37. CHLORHEXIDINE [Concomitant]
     Active Substance: CHLORHEXIDINE
  38. DEXAMETHASONE. [Concomitant]
     Active Substance: DEXAMETHASONE
  39. PREDNISONE. [Concomitant]
     Active Substance: PREDNISONE
  40. RITUXAN [Concomitant]
     Active Substance: RITUXIMAB

REACTIONS (1)
  - Aplastic anaemia [Recovered/Resolved]
